FAERS Safety Report 7267892-2 (Version None)
Quarter: 2011Q1

REPORT INFORMATION
  Report Type: 
  Country: None (occurrence: None)
  Receive Date: 20110201
  Receipt Date: 20110126
  Transmission Date: 20110831
  Serious: Yes (Hospitalization, Other)
  Sender: FDA-Public Use
  Company Number: US-ABBOTT-11P-163-0701521-00

PATIENT
  Sex: Female

DRUGS (6)
  1. LORTAB [Concomitant]
     Indication: PRODUCT USED FOR UNKNOWN INDICATION
  2. HUMIRA [Suspect]
     Indication: COLITIS ULCERATIVE
     Dates: start: 20101201
  3. UNKNOWN MEDICATION [Concomitant]
     Indication: GASTROINTESTINAL MOTILITY DISORDER
  4. PREDNISONE [Concomitant]
     Indication: PRODUCT USED FOR UNKNOWN INDICATION
     Route: 048
     Dates: start: 20110122
  5. UNKNOWN MEDICATION [Concomitant]
     Indication: INFLAMMATION
  6. UNKNOWN MEDICATION [Concomitant]
     Indication: FLATULENCE

REACTIONS (9)
  - BONE PAIN [None]
  - DIARRHOEA HAEMORRHAGIC [None]
  - PYREXIA [None]
  - DRUG INEFFECTIVE [None]
  - ANAEMIA [None]
  - HEAD DISCOMFORT [None]
  - DEHYDRATION [None]
  - ABDOMINAL PAIN [None]
  - FATIGUE [None]
